FAERS Safety Report 9730012 (Version 9)
Quarter: 2016Q4

REPORT INFORMATION
  Report Type: Spontaneous
  Country: US (occurrence: US)
  Receive Date: 20131204
  Receipt Date: 20161026
  Transmission Date: 20170207
  Serious: Yes (Hospitalization, Disabling, Other)
  Sender: FDA-Public Use
  Company Number: US-009507513-1312USA001794

PATIENT
  Sex: Female
  Weight: 56.69 kg

DRUGS (3)
  1. ALENDRONATE SODIUM. [Suspect]
     Active Substance: ALENDRONATE SODIUM
     Indication: OSTEOPOROSIS
     Dosage: UNK
     Route: 065
     Dates: end: 2009
  2. FOSAMAX [Suspect]
     Active Substance: ALENDRONATE SODIUM
     Indication: OSTEOPOROSIS
     Dosage: UNK, UNK
     Route: 048
     Dates: start: 199505
  3. FOSAMAX [Suspect]
     Active Substance: ALENDRONATE SODIUM
     Dosage: 70 MG, QW
     Route: 048
     Dates: start: 200410

REACTIONS (43)
  - Mobility decreased [Unknown]
  - Colitis microscopic [Unknown]
  - Hypothyroidism [Unknown]
  - Stress urinary incontinence [Unknown]
  - Medical device removal [Unknown]
  - Fracture nonunion [Unknown]
  - Pancreatic insufficiency [Unknown]
  - Exostosis of jaw [Unknown]
  - Femur fracture [Recovered/Resolved]
  - Amnesia [Unknown]
  - Osteoarthritis [Unknown]
  - Gastrooesophageal reflux disease [Unknown]
  - Asthenia [Unknown]
  - Endometrial cancer [Unknown]
  - Periprosthetic fracture [Recovered/Resolved]
  - Osteoarthritis [Unknown]
  - Fall [Unknown]
  - Uterine cancer [Unknown]
  - Insomnia [Unknown]
  - Irritable bowel syndrome [Unknown]
  - Emphysema [Unknown]
  - Hysterectomy [Unknown]
  - Osteoporosis [Not Recovered/Not Resolved]
  - Hypertension [Unknown]
  - Impaired healing [Unknown]
  - Lower limb fracture [Unknown]
  - Balance disorder [Unknown]
  - Depression [Not Recovered/Not Resolved]
  - Limb asymmetry [Unknown]
  - Spinal fracture [Unknown]
  - Peroneal nerve palsy [Unknown]
  - Knee arthroplasty [Recovered/Resolved]
  - Anaemia postoperative [Unknown]
  - Ulcer [Unknown]
  - Gingivectomy [Unknown]
  - Arthralgia [Unknown]
  - Pain [Unknown]
  - Body height decreased [Unknown]
  - Large intestine polyp [Unknown]
  - Dental caries [Unknown]
  - Low turnover osteopathy [Not Recovered/Not Resolved]
  - Cerebrovascular accident [Unknown]
  - Abasia [Unknown]

NARRATIVE: CASE EVENT DATE: 1995
